FAERS Safety Report 5102365-4 (Version None)
Quarter: 2006Q3

REPORT INFORMATION
  Report Type: 
  Country: None (occurrence: None)
  Receive Date: 20060912
  Receipt Date: 20060627
  Transmission Date: 20061208
  Serious: Yes (Other)
  Sender: FDA-Public Use
  Company Number: US-GLAXOSMITHKLINE-A0610517A

PATIENT
  Age: 13 Year
  Sex: Male

DRUGS (2)
  1. FLOVENT [Suspect]
     Indication: ASTHMA
     Dosage: 440MCG TWICE PER DAY
     Route: 055
     Dates: start: 20060627
  2. ALBUTEROL [Concomitant]

REACTIONS (1)
  - ASTHMA [None]
